FAERS Safety Report 16821141 (Version 15)
Quarter: 2019Q4

REPORT INFORMATION
  Report Type: Spontaneous
  Country: US (occurrence: US)
  Receive Date: 20190918
  Receipt Date: 20191217
  Transmission Date: 20200122
  Serious: Yes (Life-Threatening, Other)
  Sender: FDA-Public Use
  Company Number: US-UNITED THERAPEUTICS-UNT-2019-015261

PATIENT
  Age: 12 Year
  Sex: Male
  Weight: 32.79 kg

DRUGS (9)
  1. ADCIRCA [Concomitant]
     Active Substance: TADALAFIL
     Indication: PULMONARY ARTERIAL HYPERTENSION
     Dosage: UNK
     Route: 065
  2. TYVASO [Suspect]
     Active Substance: TREPROSTINIL
     Dosage: 36 ?G, QID
     Dates: start: 2019
  3. TYVASO [Suspect]
     Active Substance: TREPROSTINIL
     Dosage: 12 ?G, QID
     Dates: start: 20190910
  4. TYVASO [Suspect]
     Active Substance: TREPROSTINIL
     Dosage: UNK
  5. TYVASO [Suspect]
     Active Substance: TREPROSTINIL
     Indication: PULMONARY ARTERIAL HYPERTENSION
     Dosage: 18-54 ?G, QID
     Dates: start: 20190829
  6. TYVASO [Suspect]
     Active Substance: TREPROSTINIL
     Dosage: 18 ?G, UNK
     Dates: start: 20190917
  7. AMBRISENTAN [Concomitant]
     Active Substance: AMBRISENTAN
     Indication: PRODUCT USED FOR UNKNOWN INDICATION
     Dosage: UNK
     Route: 065
  8. TYVASO [Suspect]
     Active Substance: TREPROSTINIL
     Dosage: UNK
  9. TYVASO [Suspect]
     Active Substance: TREPROSTINIL
     Dosage: UNK

REACTIONS (22)
  - Dyspnoea at rest [Not Recovered/Not Resolved]
  - Rales [Recovered/Resolved]
  - Dyspnoea exertional [Not Recovered/Not Resolved]
  - Product dose omission [Unknown]
  - Nocturnal dyspnoea [Not Recovered/Not Resolved]
  - Nausea [Recovered/Resolved]
  - Skin warm [Not Recovered/Not Resolved]
  - Cough [Not Recovered/Not Resolved]
  - Asthenia [Recovered/Resolved]
  - Nasopharyngitis [Recovered/Resolved]
  - Dyspnoea [Recovered/Resolved]
  - Palpitations [Recovered/Resolved]
  - Wheezing [Recovered/Resolved]
  - Muscle spasms [Unknown]
  - Tachycardia [Recovered/Resolved]
  - Fatigue [Not Recovered/Not Resolved]
  - Retching [Recovered/Resolved]
  - Respiratory distress [Recovered/Resolved]
  - Respiratory rate increased [Recovered/Resolved]
  - Vomiting [Recovered/Resolved]
  - Bronchospasm [Not Recovered/Not Resolved]
  - Respiratory tract congestion [Not Recovered/Not Resolved]

NARRATIVE: CASE EVENT DATE: 2019
